FAERS Safety Report 13262174 (Version 2)
Quarter: 2021Q1

REPORT INFORMATION
  Report Type: Report from Study
  Country: US (occurrence: US)
  Receive Date: 20170222
  Receipt Date: 20210204
  Transmission Date: 20210419
  Serious: Yes (Other)
  Sender: FDA-Public Use
  Company Number: US-AMGEN-USASL2017023831

PATIENT
  Age: 62 Year
  Sex: Female

DRUGS (1)
  1. ENBREL [Suspect]
     Active Substance: ETANERCEPT
     Indication: RHEUMATOID ARTHRITIS
     Dosage: 50 MG, QWK
     Route: 065
     Dates: start: 2010

REACTIONS (9)
  - Gait disturbance [Unknown]
  - Loss of consciousness [Unknown]
  - Arthralgia [Not Recovered/Not Resolved]
  - Ill-defined disorder [Unknown]
  - Injury [Unknown]
  - Arthralgia [Unknown]
  - Mobility decreased [Unknown]
  - Rib fracture [Not Recovered/Not Resolved]
  - Peripheral swelling [Not Recovered/Not Resolved]

NARRATIVE: CASE EVENT DATE: 201701
